FAERS Safety Report 20162448 (Version 1)
Quarter: 2021Q4

REPORT INFORMATION
  Report Type: Spontaneous
  Country: US (occurrence: US)
  Receive Date: 20211208
  Receipt Date: 20211208
  Transmission Date: 20220303
  Serious: No
  Sender: FDA-Public Use
  Company Number: US-AMGEN-USASP2021190255

PATIENT
  Age: 65 Year
  Sex: Female

DRUGS (3)
  1. REPATHA [Suspect]
     Active Substance: EVOLOCUMAB
     Indication: Cardiovascular disorder
     Dosage: 140 MILLIGRAM, Q2WK
     Route: 065
     Dates: start: 20211019
  2. REPATHA [Suspect]
     Active Substance: EVOLOCUMAB
     Indication: Transient ischaemic attack
  3. REPATHA [Suspect]
     Active Substance: EVOLOCUMAB
     Indication: Arteriosclerosis

REACTIONS (11)
  - Blood creatine phosphokinase increased [Unknown]
  - Nausea [Unknown]
  - Fatigue [Unknown]
  - Dysgeusia [Unknown]
  - Arthralgia [Unknown]
  - Asthenia [Unknown]
  - Headache [Unknown]
  - Decreased appetite [Unknown]
  - Weight decreased [Unknown]
  - Back pain [Unknown]
  - Myalgia [Unknown]

NARRATIVE: CASE EVENT DATE: 20211001
